FAERS Safety Report 4965511-9 (Version None)
Quarter: 2006Q2

REPORT INFORMATION
  Report Type: 
  Country: None (occurrence: None)
  Receive Date: 20060406
  Receipt Date: 20050315
  Transmission Date: 20061013
  Serious: Yes (Disabling, Other)
  Sender: FDA-Public Use
  Company Number: US-MERCK-0503USA03168

PATIENT
  Age: 58 Year
  Sex: Female
  Weight: 109 kg

DRUGS (6)
  1. VIOXX [Suspect]
     Indication: ANTIINFLAMMATORY THERAPY
     Route: 048
     Dates: start: 20000101, end: 20040101
  2. METFORMIN HYDROCHLORIDE [Concomitant]
     Route: 065
  3. AVANDIA [Concomitant]
     Route: 065
  4. ZANTAC [Concomitant]
     Route: 065
  5. LEVOTHROID [Concomitant]
     Route: 065
  6. SKELAXIN [Concomitant]
     Route: 065

REACTIONS (11)
  - BACK INJURY [None]
  - CARDIAC FAILURE [None]
  - CEREBROVASCULAR ACCIDENT [None]
  - CHEST PAIN [None]
  - FALL [None]
  - HEPATOCELLULAR DAMAGE [None]
  - MYOCARDIAL INFARCTION [None]
  - POLYTRAUMATISM [None]
  - RENAL DISORDER [None]
  - THROMBOSIS [None]
  - ULCER [None]
